FAERS Safety Report 4795623-4 (Version None)
Quarter: 2005Q4

REPORT INFORMATION
  Report Type: 
  Country: None (occurrence: None)
  Receive Date: 20051012
  Receipt Date: 20051003
  Transmission Date: 20060501
  Serious: Yes (Other)
  Sender: FDA-Public Use
  Company Number: US-MERCK-0510USA03516

PATIENT
  Age: 68 Year
  Sex: Female

DRUGS (2)
  1. VYTORIN [Suspect]
     Route: 048
  2. ZOCOR [Suspect]
     Route: 048

REACTIONS (1)
  - MYOSITIS [None]
